FAERS Safety Report 4400968-3 (Version None)
Quarter: 2004Q3

REPORT INFORMATION
  Report Type: 
  Country: None (occurrence: None)
  Receive Date: 20040907
  Receipt Date: 20030827
  Transmission Date: 20050211
  Serious: Yes (Hospitalization, Other)
  Sender: FDA-Public Use
  Company Number: US-BRISTOL-MYERS SQUIBB COMPANY-12368312

PATIENT
  Sex: Female

DRUGS (1)
  1. COUMADIN [Suspect]

REACTIONS (2)
  - HAEMORRHAGE [None]
  - OVERDOSE [None]
